FAERS Safety Report 8064270-3 (Version None)
Quarter: 2011Q4

REPORT INFORMATION
  Report Type: 
  Country: None (occurrence: None)
  Receive Date: 20111221
  Receipt Date: 20110810
  Transmission Date: 20120403
  Serious: Yes (Other)
  Sender: FDA-Public Use
  Company Number: 2011S1000062

PATIENT
  Age: 54 Year
  Sex: Male

DRUGS (7)
  1. BENADRYL [Concomitant]
  2. KRYSTEXXA [Suspect]
     Indication: GOUTY TOPHUS
     Dosage: 8 MG;X1
     Dates: start: 20110727, end: 20110727
  3. KRYSTEXXA [Suspect]
     Indication: GOUTY TOPHUS
     Dosage: 8 MG;X1
     Dates: start: 20110810, end: 20110810
  4. TYLENOL (CAPLET) [Concomitant]
  5. SOLU-MEDROL [Concomitant]
  6. PREDNISONE TAB [Concomitant]
  7. LORTAB [Concomitant]

REACTIONS (2)
  - BLOOD PRESSURE INCREASED [None]
  - ANAPHYLACTIC REACTION [None]
